FAERS Safety Report 5425944-3 (Version None)
Quarter: 2007Q3

REPORT INFORMATION
  Report Type: 
  Country: None (occurrence: None)
  Receive Date: 20070823
  Receipt Date: 20070823
  Transmission Date: 20080115
  Serious: Yes (Hospitalization)
  Sender: FDA-Public Use
  Company Number: None

PATIENT
  Sex: Female
  Weight: 61.4 kg

DRUGS (5)
  1. CYCLOPHOSPHAMIDE [Suspect]
     Dosage: 1040 MG
  2. DOXORUBICIN HYDROCHLORIDE [Suspect]
     Dosage: 69.5 MG
  3. PREDNISONE [Suspect]
     Dosage: 375 MG
  4. RITUXIMAB (MOAB C2B8 ANTI CD20, CHIMERIC) [Suspect]
     Dosage: 700 MG
  5. VINCRISTINE SULFATE [Suspect]
     Dosage: 1.5 MG

REACTIONS (2)
  - DEHYDRATION [None]
  - SUPRAVENTRICULAR TACHYCARDIA [None]
